FAERS Safety Report 7557520-0 (Version None)
Quarter: 2011Q2

REPORT INFORMATION
  Report Type: 
  Country: None (occurrence: None)
  Receive Date: 20110620
  Receipt Date: 20110617
  Transmission Date: 20111010
  Serious: Yes (Other)
  Sender: FDA-Public Use
  Company Number: VE-PFIZER INC-2011082490

PATIENT
  Age: 56 Year
  Sex: Female

DRUGS (5)
  1. VARENICLINE TARTRATE [Suspect]
     Indication: SMOKING CESSATION THERAPY
     Dosage: 1 MG, 2X/DAY
     Route: 048
     Dates: start: 20110327
  2. DIOVAN HCT [Concomitant]
     Indication: HYPERTENSION
     Dosage: 360 MG/12.5 MG, 1X/DAY
     Route: 048
  3. IBANDRONATE SODIUM MONOHYDRATE [Concomitant]
     Indication: OSTEOPOROSIS
     Dosage: UNK
     Route: 048
  4. TIBOLONE [Concomitant]
     Dosage: UNK
     Route: 048
  5. CALCIO 500 [Concomitant]
     Indication: OSTEOPOROSIS
     Dosage: 500 MG, 1X/DAY
     Route: 048

REACTIONS (7)
  - EYE PAIN [None]
  - HYPERHIDROSIS [None]
  - OCULAR HYPERAEMIA [None]
  - DEPRESSION [None]
  - HYPOTENSION [None]
  - CONSTIPATION [None]
  - EYE SWELLING [None]
